FAERS Safety Report 18529737 (Version 2)
Quarter: 2020Q4

REPORT INFORMATION
  Report Type: Report from Study
  Country: FR (occurrence: FR)
  Receive Date: 20201120
  Receipt Date: 20201130
  Transmission Date: 20210114
  Serious: Yes (Death, Hospitalization)
  Sender: FDA-Public Use
  Company Number: FR-ASTRAZENECA-2020SF50622

PATIENT
  Age: 65 Year
  Sex: Male
  Weight: 80.1 kg

DRUGS (3)
  1. DURVALUMAB. [Suspect]
     Active Substance: DURVALUMAB
     Indication: SQUAMOUS CELL CARCINOMA
     Route: 042
     Dates: start: 20200907, end: 20201103
  2. PACLITAXEL. [Suspect]
     Active Substance: PACLITAXEL
     Indication: SQUAMOUS CELL CARCINOMA
     Dosage: 80 MG/M2 ON DAY 1, DAY 8 AND DAY 15 OF EACH CYCLE
     Route: 042
     Dates: start: 20200908, end: 20201110
  3. CARBOPLATIN. [Suspect]
     Active Substance: CARBOPLATIN
     Indication: SQUAMOUS CELL CARCINOMA
     Dosage: 160 MG ON DAY 1, DAY 8 AND DAY 15 OF EACH CYCLE
     Route: 042
     Dates: start: 20200908, end: 20201110

REACTIONS (1)
  - COVID-19 [Fatal]

NARRATIVE: CASE EVENT DATE: 20201110
